FAERS Safety Report 4862020-2 (Version None)
Quarter: 2005Q4

REPORT INFORMATION
  Report Type: 
  Country: None (occurrence: None)
  Receive Date: 20051129
  Receipt Date: 20051104
  Transmission Date: 20060501
  Serious: Yes (Death, Hospitalization, Other)
  Sender: FDA-Public Use
  Company Number: US_0506119527

PATIENT
  Age: 32 Year
  Sex: Male
  Weight: 84 kg

DRUGS (6)
  1. ZYPREXA [Suspect]
     Indication: SCHIZOPHRENIA, PARANOID TYPE
     Dosage: 30 MG DAY
     Dates: start: 19770101
  2. KLONOPIN [Concomitant]
  3. PAXIL CR [Concomitant]
  4. AMBIEN [Concomitant]
  5. IBUPROFEN [Concomitant]
  6. ALEVE [Concomitant]

REACTIONS (12)
  - DIABETIC KETOACIDOSIS [None]
  - HEPATIC ENZYME INCREASED [None]
  - HYPERGLYCAEMIA [None]
  - HYPOKALAEMIA [None]
  - HYPONATRAEMIA [None]
  - INCREASED APPETITE [None]
  - PANCREATITIS ACUTE [None]
  - PNEUMONIA [None]
  - PRESCRIBED OVERDOSE [None]
  - RENAL FAILURE ACUTE [None]
  - WEIGHT INCREASED [None]
  - WHITE BLOOD CELL COUNT INCREASED [None]
